FAERS Safety Report 5439724-6 (Version None)
Quarter: 2007Q3

REPORT INFORMATION
  Report Type: 
  Country: None (occurrence: None)
  Receive Date: 20070831
  Receipt Date: 20070727
  Transmission Date: 20080115
  Serious: Yes (Hospitalization)
  Sender: FDA-Public Use
  Company Number: US-ALLERGAN-0705063US

PATIENT
  Sex: Female
  Weight: 93.424 kg

DRUGS (3)
  1. FLUOROPLEX [Suspect]
     Indication: PHOTODERMATOSIS
     Dosage: UNK, BID
     Route: 061
     Dates: start: 20070411, end: 20070502
  2. TOPROL-XL [Concomitant]
     Indication: HYPERTENSION
     Dosage: UNK, QD
  3. EFFEXOR [Concomitant]
     Indication: DEPRESSION
     Dosage: UNK, QD

REACTIONS (4)
  - CELLULITIS [None]
  - CHEMICAL EYE INJURY [None]
  - EYE SWELLING [None]
  - SKIN ULCER [None]
